FAERS Safety Report 6491889-3 (Version None)
Quarter: 2009Q4

REPORT INFORMATION
  Report Type: 
  Country: None (occurrence: None)
  Receive Date: 20091208
  Receipt Date: 20091119
  Transmission Date: 20100525
  Serious: Yes (Hospitalization)
  Sender: FDA-Public Use
  Company Number: 2009003567

PATIENT
  Age: 56 Year
  Sex: Male
  Weight: 59 kg

DRUGS (4)
  1. ERLOTINIB HYDROCHLORIDE [Suspect]
     Indication: NON-SMALL CELL LUNG CANCER
     Dosage: (150 MG QD), ORAL
     Route: 048
     Dates: start: 20091005, end: 20091026
  2. CP-751, 871 [Suspect]
     Indication: NON-SMALL CELL LUNG CANCER
     Dosage: (1180 MG, Q3W), INTRAVENOUS
     Route: 042
     Dates: start: 20091005, end: 20091026
  3. PACLITAXEL [Suspect]
     Indication: NON-SMALL CELL LUNG CANCER
     Dosage: (330 MG, Q3W), INTRAVENOUS
     Route: 042
     Dates: start: 20091005, end: 20091026
  4. CARBOPLATIN [Suspect]
     Indication: NON-SMALL CELL LUNG CANCER
     Dosage: (30 MG, Q3W), INTRAVENOUS
     Route: 042
     Dates: start: 20091005, end: 20091026

REACTIONS (5)
  - FATIGUE [None]
  - MUCOSAL INFLAMMATION [None]
  - PERFORMANCE STATUS DECREASED [None]
  - RENAL FAILURE ACUTE [None]
  - SKIN TOXICITY [None]
